FAERS Safety Report 10012753 (Version 1)
Quarter: 2014Q1

REPORT INFORMATION
  Report Type: Spontaneous
  Country: IE (occurrence: IE)
  Receive Date: 20140314
  Receipt Date: 20140314
  Transmission Date: 20141002
  Serious: Yes (Death, Other)
  Sender: FDA-Public Use
  Company Number: PHHY2014IE030992

PATIENT
  Age: 10 Month
  Sex: Male

DRUGS (13)
  1. CARBAMAZEPINE [Suspect]
     Indication: MICROCEPHALY
  2. VALPROIC ACID [Suspect]
     Indication: MICROCEPHALY
  3. DIAZEPAM [Suspect]
     Indication: MICROCEPHALY
  4. LORAZEPAM [Suspect]
     Indication: MICROCEPHALY
  5. LEVETIRACETAM [Suspect]
     Indication: MICROCEPHALY
  6. MIDAZOLAM [Suspect]
     Indication: MICROCEPHALY
  7. CORTICOSTEROIDS [Suspect]
     Indication: MICROCEPHALY
  8. PARALDEHYDE [Suspect]
     Indication: MICROCEPHALY
  9. PHENOBARBITONE [Suspect]
     Indication: MICROCEPHALY
  10. FOSPHENYTOIN [Suspect]
     Indication: MICROCEPHALY
  11. THIOPENTAL [Suspect]
     Indication: MICROCEPHALY
  12. CEFOTAXIME [Concomitant]
     Indication: MICROCEPHALY
  13. ACYCLOVIR [Concomitant]
     Indication: MICROCEPHALY
     Route: 042

REACTIONS (9)
  - Respiratory failure [Fatal]
  - Alpers^ disease [Unknown]
  - Status epilepticus [Unknown]
  - Complex partial seizures [Unknown]
  - Gene mutation [Unknown]
  - Dyskinesia [Unknown]
  - Hypotonia [Unknown]
  - Hypokinesia [Unknown]
  - Drug ineffective [Unknown]
